FAERS Safety Report 8600664-2 (Version None)
Quarter: 2012Q3

REPORT INFORMATION
  Report Type: 
  Country: None (occurrence: None)
  Receive Date: 20120817
  Receipt Date: 20120807
  Transmission Date: 20120928
  Serious: Yes (Other)
  Sender: FDA-Public Use
  Company Number: US-JNJFOC-20120511660

PATIENT
  Sex: Male
  Weight: 81.65 kg

DRUGS (12)
  1. REMICADE [Suspect]
     Dosage: LAST INFUSION
     Route: 042
     Dates: start: 20120625
  2. CRESTOR [Concomitant]
     Indication: BLOOD CHOLESTEROL INCREASED
     Route: 048
  3. DEPO-TESTOSTERONE [Concomitant]
     Indication: BLOOD TESTOSTERONE DECREASED
     Route: 030
     Dates: start: 20100101
  4. VITAMIN B-12 [Concomitant]
     Indication: ENERGY INCREASED
     Route: 065
  5. BROMPHENIRAMINE MALEATE + PSEUDOEPHEDRINE HCL [Concomitant]
     Indication: HYPERSENSITIVITY
     Route: 048
  6. ALL OTHER THERAPEUTIC PRODUCTS [Concomitant]
     Indication: HYPERSENSITIVITY
     Route: 058
  7. REMICADE [Suspect]
     Indication: CROHN'S DISEASE
     Route: 042
     Dates: start: 20120321
  8. FLUOXETINE HCL [Concomitant]
     Indication: DEPRESSION
     Route: 048
  9. TRAZODONE HYDROCHLORIDE [Concomitant]
     Indication: SLEEP DISORDER
     Route: 048
  10. REMICADE [Suspect]
     Route: 042
     Dates: start: 20120401
  11. PANTOPRAZOLE [Concomitant]
     Indication: GASTROOESOPHAGEAL REFLUX DISEASE
     Route: 048
  12. PANTOPRAZOLE [Concomitant]
     Indication: HERNIA
     Route: 048

REACTIONS (8)
  - HEADACHE [None]
  - OEDEMA PERIPHERAL [None]
  - DYSGEUSIA [None]
  - INFUSION RELATED REACTION [None]
  - DRUG INEFFECTIVE [None]
  - HYPOTENSION [None]
  - LUPUS-LIKE SYNDROME [None]
  - HYPERTENSION [None]
